FAERS Safety Report 11649370 (Version 1)
Quarter: 2015Q4

REPORT INFORMATION
  Report Type: Spontaneous
  Country: US (occurrence: US)
  Receive Date: 20151021
  Receipt Date: 20151021
  Transmission Date: 20160304
  Serious: Yes (Other)
  Sender: FDA-Public Use
  Company Number: US-TARO-2015TAR00706

PATIENT
  Age: 69 Year
  Sex: Female
  Weight: 84.35 kg

DRUGS (3)
  1. DILANTIN [Concomitant]
     Active Substance: PHENYTOIN
     Indication: SEIZURE
     Dosage: UNK
  2. PRAVASTATIN [Concomitant]
     Active Substance: PRAVASTATIN\PRAVASTATIN SODIUM
  3. PHENYTOIN SODIUM EXTENDED [Suspect]
     Active Substance: PHENYTOIN SODIUM
     Indication: SEIZURE
     Dosage: 200 MG, 2X/DAY
     Route: 048
     Dates: start: 20150602, end: 20150604

REACTIONS (5)
  - Hypoaesthesia [Recovered/Resolved]
  - Drug ineffective [Not Recovered/Not Resolved]
  - Seizure [Recovered/Resolved]
  - Tremor [Recovered/Resolved]
  - Product substitution issue [Recovered/Resolved]

NARRATIVE: CASE EVENT DATE: 20150602
